FAERS Safety Report 22129644 (Version 6)
Quarter: 2023Q2

REPORT INFORMATION
  Report Type: Report from Study
  Country: GT (occurrence: GT)
  Receive Date: 20230323
  Receipt Date: 20230511
  Transmission Date: 20230721
  Serious: Yes (Death, Hospitalization, Other)
  Sender: FDA-Public Use
  Company Number: GT-002147023-NVSC2023GT062934

PATIENT
  Age: 39 Year
  Sex: Female

DRUGS (2)
  1. KISQALI [Suspect]
     Active Substance: RIBOCICLIB
     Indication: Breast cancer
     Dosage: 600 MG, QD (BY MOUTH)
     Route: 048
     Dates: start: 20230110, end: 20230315
  2. KISQALI [Suspect]
     Active Substance: RIBOCICLIB
     Dosage: 600 MG, QD
     Route: 048
     Dates: start: 20230110, end: 20230325

REACTIONS (13)
  - Breast cancer metastatic [Fatal]
  - Illness [Unknown]
  - Pain in extremity [Recovering/Resolving]
  - Pulmonary oedema [Recovering/Resolving]
  - Dyspnoea [Unknown]
  - Tachycardia [Recovering/Resolving]
  - Dysstasia [Recovering/Resolving]
  - Back pain [Unknown]
  - Dizziness [Recovering/Resolving]
  - Pneumonitis [Recovering/Resolving]
  - Asphyxia [Unknown]
  - Cough [Unknown]
  - Fatigue [Unknown]

NARRATIVE: CASE EVENT DATE: 20230314
